FAERS Safety Report 25741897 (Version 1)
Quarter: 2025Q3

REPORT INFORMATION
  Report Type: Report from Study
  Country: KR (occurrence: KR)
  Receive Date: 20250829
  Receipt Date: 20250829
  Transmission Date: 20251020
  Serious: Yes (Hospitalization, Other)
  Sender: ASTELLAS
  Company Number: KR-ASTELLAS-2024-AER-026384

PATIENT
  Age: 71 Year
  Sex: Male
  Weight: 70 kg

DRUGS (12)
  1. ENFORTUMAB VEDOTIN-EJFV [Suspect]
     Active Substance: ENFORTUMAB VEDOTIN-EJFV
     Indication: Transitional cell carcinoma
     Dosage: 1.14 MG/KG
     Route: 042
     Dates: start: 20231101
  2. ENFORTUMAB VEDOTIN-EJFV [Suspect]
     Active Substance: ENFORTUMAB VEDOTIN-EJFV
     Dosage: 1.09MG/KG
     Route: 042
     Dates: start: 20231115
  3. ENFORTUMAB VEDOTIN-EJFV [Suspect]
     Active Substance: ENFORTUMAB VEDOTIN-EJFV
     Dosage: 1.24MG/KG
     Route: 042
     Dates: start: 20231218
  4. ENFORTUMAB VEDOTIN-EJFV [Suspect]
     Active Substance: ENFORTUMAB VEDOTIN-EJFV
     Dosage: 1.25MG/KG
     Route: 042
     Dates: start: 20231227
  5. ENFORTUMAB VEDOTIN-EJFV [Suspect]
     Active Substance: ENFORTUMAB VEDOTIN-EJFV
     Dosage: 1.24MG/KG
     Route: 042
     Dates: start: 20240103
  6. ENFORTUMAB VEDOTIN-EJFV [Suspect]
     Active Substance: ENFORTUMAB VEDOTIN-EJFV
     Dosage: 1.21MG/KG
     Route: 042
     Dates: start: 20240215
  7. ENFORTUMAB VEDOTIN-EJFV [Suspect]
     Active Substance: ENFORTUMAB VEDOTIN-EJFV
     Dosage: 1.25MG/KG
     Route: 042
     Dates: start: 20240222
  8. ENFORTUMAB VEDOTIN-EJFV [Suspect]
     Active Substance: ENFORTUMAB VEDOTIN-EJFV
     Dosage: 1.14 MG/KG
     Route: 042
     Dates: start: 20231108
  9. ENFORTUMAB VEDOTIN-EJFV [Suspect]
     Active Substance: ENFORTUMAB VEDOTIN-EJFV
     Dosage: 1.25MG/KG
     Route: 042
     Dates: start: 20240229
  10. Magmil S [Concomitant]
     Indication: Premedication
     Route: 048
     Dates: start: 20231117
  11. Gastiin CR [Concomitant]
     Indication: Premedication
     Route: 048
     Dates: start: 20231117
  12. HERBALS [Concomitant]
     Active Substance: HERBALS
     Indication: Premedication
     Route: 048
     Dates: start: 20231117

REACTIONS (5)
  - Shock haemorrhagic [Recovered/Resolved]
  - Neutropenia [Recovered/Resolved]
  - Intestinal obstruction [Recovered/Resolved]
  - Decreased appetite [Recovering/Resolving]
  - Oral candidiasis [Recovering/Resolving]

NARRATIVE: CASE EVENT DATE: 20231108
